FAERS Safety Report 5420444-9 (Version None)
Quarter: 2007Q3

REPORT INFORMATION
  Report Type: 
  Country: None (occurrence: None)
  Receive Date: 20070816
  Receipt Date: 20070806
  Transmission Date: 20080115
  Serious: Yes (Other)
  Sender: FDA-Public Use
  Company Number: US020939

PATIENT
  Age: 1 Day
  Sex: Female
  Weight: 3.7422 kg

DRUGS (2)
  1. PROVIGIL [Suspect]
     Dosage: 200 MG TO 400 MG QD TRANSPLACENTAL
     Route: 064
     Dates: start: 20061015, end: 20070708
  2. MULTIVITAMIN [Concomitant]

REACTIONS (8)
  - APGAR SCORE LOW [None]
  - BREECH DELIVERY [None]
  - CAESAREAN SECTION [None]
  - DRUG EXPOSURE DURING PREGNANCY [None]
  - FOETAL HEART RATE DECELERATION [None]
  - INDUCED LABOUR [None]
  - NEONATAL RESPIRATORY ACIDOSIS [None]
  - UMBILICAL CORD ABNORMALITY [None]
